FAERS Safety Report 6774494-0 (Version None)
Quarter: 2010Q2

REPORT INFORMATION
  Report Type: 
  Country: None (occurrence: None)
  Receive Date: 20100617
  Receipt Date: 20100608
  Transmission Date: 20101027
  Serious: Yes (Hospitalization, Other)
  Sender: FDA-Public Use
  Company Number: PHHY2010US37696

PATIENT
  Age: 52 Year
  Sex: Male
  Weight: 69.5 kg

DRUGS (1)
  1. MYFORTIC [Suspect]
     Dosage: 360 MG, BID
     Route: 048
     Dates: start: 20090616, end: 20090901

REACTIONS (5)
  - APOPTOSIS [None]
  - DIARRHOEA [None]
  - GASTROINTESTINAL INJURY [None]
  - IRON DEFICIENCY ANAEMIA [None]
  - WEIGHT DECREASED [None]
